FAERS Safety Report 4914163-2 (Version None)
Quarter: 2006Q1

REPORT INFORMATION
  Report Type: 
  Country: None (occurrence: None)
  Receive Date: 20060216
  Receipt Date: 20060201
  Transmission Date: 20060701
  Serious: Yes (Hospitalization)
  Sender: FDA-Public Use
  Company Number: SEWYE355601FEB06

PATIENT
  Sex: Female

DRUGS (5)
  1. ENBREL [Suspect]
     Indication: DRUG USE FOR UNKNOWN INDICATION
     Dosage: 50 MG PER WEEK
     Dates: start: 20040901
  2. PREDNISOLONE [Concomitant]
  3. LEVAXIN [Concomitant]
  4. CODEINE PHOSPHATE [Concomitant]
  5. IBUPROFEN [Concomitant]

REACTIONS (1)
  - UROSEPSIS [None]
